FAERS Safety Report 7722394-1 (Version None)
Quarter: 2011Q3

REPORT INFORMATION
  Report Type: 
  Country: None (occurrence: None)
  Receive Date: 20110831
  Receipt Date: 20110405
  Transmission Date: 20111222
  Serious: No
  Sender: FDA-Public Use
  Company Number: US-BAYER-2011-030067

PATIENT
  Sex: Female

DRUGS (1)
  1. MIRENA [Suspect]
     Dosage: UNK
     Dates: start: 20100101

REACTIONS (10)
  - ACNE [None]
  - MALAISE [None]
  - VAGINAL DISCHARGE [None]
  - METRORRHAGIA [None]
  - WEIGHT INCREASED [None]
  - COUGH [None]
  - ABDOMINAL DISTENSION [None]
  - DEPRESSION [None]
  - IRRITABILITY [None]
  - LOWER RESPIRATORY TRACT INFECTION [None]
